FAERS Safety Report 15607461 (Version 2)
Quarter: 2018Q4

REPORT INFORMATION
  Report Type: Spontaneous
  Country: US (occurrence: US)
  Receive Date: 20181112
  Receipt Date: 20181119
  Transmission Date: 20190205
  Serious: Yes (Death)
  Sender: FDA-Public Use
  Company Number: US-IMPAX LABORATORIES, LLC-2018-IPXL-03695

PATIENT
  Age: 76 Year
  Sex: Male

DRUGS (2)
  1. ADRENACLICK [Suspect]
     Active Substance: EPINEPHRINE
     Indication: PRODUCT USE IN UNAPPROVED INDICATION
  2. ADRENACLICK [Suspect]
     Active Substance: EPINEPHRINE
     Indication: RECTAL HAEMORRHAGE
     Dosage: UNK, LOCAL
     Route: 065

REACTIONS (2)
  - Cardiac death [Fatal]
  - Product use in unapproved indication [Unknown]
